FAERS Safety Report 4897155-1 (Version None)
Quarter: 2006Q1

REPORT INFORMATION
  Report Type: 
  Country: None (occurrence: None)
  Receive Date: 20060131
  Receipt Date: 20051220
  Transmission Date: 20060701
  Serious: Yes (Congenital Anomaly)
  Sender: FDA-Public Use
  Company Number: DE-MERCK-0512DEU00103B1

PATIENT
  Sex: Female

DRUGS (1)
  1. PROPECIA [Suspect]

REACTIONS (3)
  - CONGENITAL HAND MALFORMATION [None]
  - PREGNANCY OF PARTNER [None]
  - TRANSMISSION OF DRUG VIA SEMEN [None]
